FAERS Safety Report 16167549 (Version 4)
Quarter: 2019Q3

REPORT INFORMATION
  Report Type: Report from Study
  Country: US (occurrence: US)
  Receive Date: 20190408
  Receipt Date: 20190725
  Transmission Date: 20191004
  Serious: Yes (Life-Threatening, Hospitalization, Disabling, Other)
  Sender: FDA-Public Use
  Company Number: US-SA-2019SA092841

PATIENT
  Age: 38 Year
  Sex: Female

DRUGS (3)
  1. ALEMTUZUMAB [Suspect]
     Active Substance: ALEMTUZUMAB
     Dosage: 12 MG, QD
     Route: 041
     Dates: start: 20151116, end: 20151120
  2. ALEMTUZUMAB [Suspect]
     Active Substance: ALEMTUZUMAB
     Dosage: 12 MG, QD
     Route: 041
     Dates: start: 20170501, end: 20170503
  3. ALEMTUZUMAB [Suspect]
     Active Substance: ALEMTUZUMAB
     Indication: MULTIPLE SCLEROSIS
     Dosage: 12 MG, QD
     Route: 041
     Dates: start: 20190325, end: 20190327

REACTIONS (10)
  - Blood pressure increased [Unknown]
  - Aphasia [Unknown]
  - Cerebrovascular accident [Recovered/Resolved]
  - Bradycardia [Unknown]
  - Hypotension [Unknown]
  - Unresponsive to stimuli [Unknown]
  - Cerebral haemorrhage [Unknown]
  - Blood pressure systolic [Unknown]
  - Basal ganglia haemorrhage [Unknown]
  - Hemiplegia [Unknown]

NARRATIVE: CASE EVENT DATE: 2019
